FAERS Safety Report 16457379 (Version 2)
Quarter: 2019Q2

REPORT INFORMATION
  Report Type: Spontaneous
  Country: IL (occurrence: IL)
  Receive Date: 20190620
  Receipt Date: 20190625
  Transmission Date: 20190711
  Serious: Yes (Other)
  Sender: FDA-Public Use
  Company Number: IL-TEVA-2019-IL-1065467

PATIENT
  Age: 30 Year
  Sex: Female

DRUGS (1)
  1. ALLERGYX [Suspect]
     Active Substance: LORATADINE
     Dosage: ONE UNIT PER DAY ON A NON-CONSECUTIVE DAYS
     Route: 065
     Dates: start: 201905

REACTIONS (5)
  - Expired product administered [Unknown]
  - Feeling of relaxation [Unknown]
  - Dependence [Unknown]
  - Feeling abnormal [Unknown]
  - Euphoric mood [Unknown]
